FAERS Safety Report 5933620-3 (Version None)
Quarter: 2008Q4

REPORT INFORMATION
  Report Type: 
  Country: None (occurrence: None)
  Receive Date: 20081024
  Receipt Date: 20081010
  Transmission Date: 20090506
  Serious: Yes (Other)
  Sender: FDA-Public Use
  Company Number: TPG2008A01286

PATIENT
  Age: 53 Year
  Sex: Male

DRUGS (3)
  1. ACTOS [Suspect]
     Indication: TYPE 2 DIABETES MELLITUS
     Dosage: 30 MG (30 MG, 1 IN 1 D); PER ORAL
     Route: 048
     Dates: start: 20071221
  2. INSULIN (INSULIN) [Concomitant]
  3. METFORMIN (INSULIN) [Concomitant]

REACTIONS (1)
  - TENDON RUPTURE [None]
